FAERS Safety Report 11372969 (Version 1)
Quarter: 2015Q3

REPORT INFORMATION
  Report Type: Spontaneous
  Country: US (occurrence: US)
  Receive Date: 20150811
  Receipt Date: 20150811
  Transmission Date: 20151125
  Serious: No
  Sender: FDA-Public Use
  Company Number: US-ELI_LILLY_AND_COMPANY-US201202000698

PATIENT
  Sex: Male

DRUGS (3)
  1. CIALIS [Suspect]
     Active Substance: TADALAFIL
     Indication: ERECTILE DYSFUNCTION
     Dosage: 2.5 MG, UNK
  2. CIALIS [Suspect]
     Active Substance: TADALAFIL
     Dosage: 5 MG, QD
     Dates: end: 20120113
  3. CIALIS [Suspect]
     Active Substance: TADALAFIL
     Dosage: 5 MG, QOD

REACTIONS (9)
  - Hypertension [Unknown]
  - Drug ineffective [Unknown]
  - Anxiety [Unknown]
  - Benign prostatic hyperplasia [Unknown]
  - Nocturia [Unknown]
  - Peyronie^s disease [Unknown]
  - Therapeutic response decreased [Unknown]
  - Heart rate increased [Unknown]
  - Flushing [Unknown]
